FAERS Safety Report 23922324 (Version 6)
Quarter: 2025Q1

REPORT INFORMATION
  Report Type: Spontaneous
  Country: CA (occurrence: CA)
  Receive Date: 20240531
  Receipt Date: 20250222
  Transmission Date: 20250409
  Serious: Yes (Other)
  Sender: CELLTRION
  Company Number: CA-PFIZER INC-202400179027

PATIENT

DRUGS (4)
  1. INFLECTRA [Suspect]
     Active Substance: INFLIXIMAB-DYYB
     Indication: Crohn^s disease
     Route: 042
     Dates: start: 20231212
  2. INFLECTRA [Suspect]
     Active Substance: INFLIXIMAB-DYYB
     Route: 042
  3. INFLECTRA [Suspect]
     Active Substance: INFLIXIMAB-DYYB
     Route: 042
  4. INFLECTRA [Suspect]
     Active Substance: INFLIXIMAB-DYYB
     Route: 042

REACTIONS (5)
  - Umbilical hernia [Unknown]
  - Postoperative wound infection [Recovered/Resolved]
  - Lymphadenopathy [Not Recovered/Not Resolved]
  - Condition aggravated [Recovered/Resolved]
  - Abscess rupture [Not Recovered/Not Resolved]

NARRATIVE: CASE EVENT DATE: 20240701
